FAERS Safety Report 9145424 (Version 2)
Quarter: 2013Q2

REPORT INFORMATION
  Report Type: Report from Study
  Country: JP (occurrence: JP)
  Receive Date: 20130307
  Receipt Date: 20130418
  Transmission Date: 20140414
  Serious: Yes (Other)
  Sender: FDA-Public Use
  Company Number: JP-JNJFOC-20130300631

PATIENT
  Age: 74 Year
  Sex: Female
  Weight: 70 kg

DRUGS (15)
  1. SIMPONI [Suspect]
     Indication: RHEUMATOID ARTHRITIS
     Route: 058
     Dates: start: 20121010
  2. SIMPONI [Suspect]
     Indication: RHEUMATOID ARTHRITIS
     Route: 058
     Dates: start: 20120829
  3. SIMPONI [Suspect]
     Indication: RHEUMATOID ARTHRITIS
     Route: 058
     Dates: start: 20120622
  4. SIMPONI [Suspect]
     Indication: RHEUMATOID ARTHRITIS
     Route: 058
     Dates: start: 20120720
  5. METHOTREXATE [Suspect]
     Indication: RHEUMATOID ARTHRITIS
     Dates: start: 20121002
  6. METHOTREXATE [Suspect]
     Indication: RHEUMATOID ARTHRITIS
     Dates: start: 20100802, end: 20121001
  7. PREDONINE [Suspect]
     Indication: RHEUMATOID ARTHRITIS
     Route: 048
     Dates: start: 20090731
  8. BAKTAR [Suspect]
     Indication: PROPHYLAXIS
     Route: 048
     Dates: start: 20120718, end: 20120815
  9. SALAZOSULFAPYRIDINE [Concomitant]
     Indication: RHEUMATOID ARTHRITIS
  10. HYPEN [Concomitant]
     Indication: RHEUMATOID ARTHRITIS
     Route: 048
     Dates: end: 20120919
  11. FOLIAMIN [Concomitant]
     Indication: RHEUMATOID ARTHRITIS
  12. DIOVAN [Concomitant]
     Route: 048
  13. ALFAROL [Concomitant]
     Indication: RHEUMATOID ARTHRITIS
     Route: 048
  14. LIPITOR [Concomitant]
     Route: 048
  15. ISCOTIN [Concomitant]

REACTIONS (2)
  - Pneumonia [Recovered/Resolved]
  - Liver disorder [Recovered/Resolved]
